FAERS Safety Report 5621475-6 (Version None)
Quarter: 2008Q1

REPORT INFORMATION
  Report Type: 
  Country: None (occurrence: None)
  Receive Date: 20080129
  Receipt Date: 20030626
  Transmission Date: 20080703
  Serious: Yes (Other)
  Sender: FDA-Public Use
  Company Number: CHNY2003SE00754

PATIENT
  Age: 30 Year
  Sex: Female

DRUGS (1)
  1. SCOPODERM TTS [Suspect]
     Indication: MOTION SICKNESS
     Dosage: AT THREE OCCASIONS, TRANSDERMAL
     Route: 062

REACTIONS (1)
  - DEAFNESS UNILATERAL [None]
